FAERS Safety Report 22151866 (Version 1)
Quarter: 2023Q1

REPORT INFORMATION
  Report Type: Spontaneous
  Country: AU (occurrence: AU)
  Receive Date: 20230329
  Receipt Date: 20230329
  Transmission Date: 20230418
  Serious: Yes (Death, Hospitalization, Other)
  Sender: FDA-Public Use
  Company Number: AU-009507513-2303AUS008137

PATIENT
  Age: 64 Year
  Sex: Male

DRUGS (1)
  1. PEMBROLIZUMAB [Suspect]
     Active Substance: PEMBROLIZUMAB
     Indication: Non-small cell lung cancer stage IV
     Dosage: 200 MG EVERY 3 WEEKS
     Dates: start: 202202

REACTIONS (1)
  - Myelitis transverse [Fatal]

NARRATIVE: CASE EVENT DATE: 20220701
